FAERS Safety Report 6193915-8 (Version None)
Quarter: 2009Q2

REPORT INFORMATION
  Report Type: 
  Country: None (occurrence: None)
  Receive Date: 20090518
  Receipt Date: 20090507
  Transmission Date: 20091009
  Serious: Yes (Hospitalization)
  Sender: FDA-Public Use
  Company Number: IL-PFIZER INC-2009209579

PATIENT
  Age: 68 Year

DRUGS (7)
  1. BLINDED *PLACEBO [Suspect]
     Indication: PROSTATE CANCER
     Dosage: 37.5 MG, 1X/DAY
     Route: 048
     Dates: start: 20090402, end: 20090422
  2. BLINDED SUNITINIB MALATE [Suspect]
     Indication: PROSTATE CANCER
     Dosage: 37.5 MG, 1X/DAY
     Route: 048
     Dates: start: 20090402, end: 20090422
  3. PREDNISONE [Suspect]
     Indication: PROSTATE CANCER
     Dosage: 5 (UNIT UNSPECIFIED), TWICE
     Route: 048
     Dates: start: 20090402
  4. ALL OTHER THERAPEUTIC PRODUCTS [Concomitant]
     Indication: PAIN
     Dosage: 150 MG, EVERY 3 DAYS
     Route: 061
     Dates: start: 20090101
  5. CLONEX [Concomitant]
     Indication: ANXIETY
     Dosage: 0.5 MG, AS NEEDED
     Route: 048
     Dates: start: 20090101
  6. LOSEC [Concomitant]
     Indication: HYPERCHLORHYDRIA
     Dosage: 20 MG, 1X/DAY
     Route: 048
     Dates: start: 20090312
  7. ZOLADEX [Concomitant]
     Indication: HORMONE THERAPY
     Dosage: 0.8 MG, EVERY 3 MONTHS
     Route: 058
     Dates: start: 20070101

REACTIONS (1)
  - PNEUMONIA [None]
